FAERS Safety Report 7389058-8 (Version None)
Quarter: 2011Q2

REPORT INFORMATION
  Report Type: 
  Country: None (occurrence: None)
  Receive Date: 20110401
  Receipt Date: 20110328
  Transmission Date: 20111010
  Serious: Yes (Other)
  Sender: FDA-Public Use
  Company Number: US-PFIZER INC-2010029742

PATIENT
  Sex: Female

DRUGS (11)
  1. ZOLOFT [Suspect]
     Indication: DISTURBANCE IN ATTENTION
  2. ZOLOFT [Suspect]
     Indication: ANXIETY
  3. ASPIRIN [Suspect]
  4. PREMARIN [Suspect]
  5. CALCIUM WITH VITAMIN D [Suspect]
  6. XANAX [Suspect]
     Indication: ANXIETY
     Dosage: 0.125 MG, 1X/DAY
     Route: 048
     Dates: start: 20100125
  7. ZOLOFT [Suspect]
     Indication: DEPRESSION
     Dosage: 50 MG, 1X/DAY
     Route: 048
     Dates: start: 20100304
  8. SIMVASTATIN [Suspect]
  9. LEVOTHYROXINE [Concomitant]
     Dosage: UNK
  10. TENORMIN [Suspect]
  11. VITAMIN B COMPLEX CAP [Suspect]

REACTIONS (4)
  - DRUG INEFFECTIVE [None]
  - DEPRESSION [None]
  - HYPERTENSION [None]
  - ANXIETY [None]
